FAERS Safety Report 6079958-3 (Version None)
Quarter: 2009Q1

REPORT INFORMATION
  Report Type: 
  Country: None (occurrence: None)
  Receive Date: 20090217
  Receipt Date: 20090217
  Transmission Date: 20090719
  Serious: Yes (Other)
  Sender: FDA-Public Use
  Company Number: FR-PFIZER INC-2008158707

PATIENT

DRUGS (3)
  1. NELFINAVIR MESILATE [Suspect]
     Indication: HIV INFECTION
  2. ZIDOVUDINE [Suspect]
     Route: 042
  3. LAMIVUDINE [Suspect]

REACTIONS (2)
  - ASTROCYTOMA [None]
  - DRUG EXPOSURE DURING PREGNANCY [None]
